FAERS Safety Report 9291387 (Version 1)
Quarter: 2013Q2

REPORT INFORMATION
  Report Type: Spontaneous
  Country: US (occurrence: US)
  Receive Date: 20130515
  Receipt Date: 20130515
  Transmission Date: 20140414
  Serious: No
  Sender: FDA-Public Use
  Company Number: US-ASTRAZENECA-2013SE28570

PATIENT
  Age: 69 Year
  Sex: Female
  Weight: 86.2 kg

DRUGS (10)
  1. PULMICORT FLEXHALER [Suspect]
     Indication: CHRONIC OBSTRUCTIVE PULMONARY DISEASE
     Dosage: 360 MCGS DAILY
     Route: 055
  2. NEXIUM [Suspect]
     Dosage: UNKNOWN DAILY
     Route: 048
  3. OMEPRAZOLE [Suspect]
     Dosage: 20 MGS DAILY
     Route: 048
  4. CELEXA [Concomitant]
     Dosage: UNKNOWN
  5. PREVASTATIN [Concomitant]
     Dosage: UNKNOWN
  6. SYNTHROID [Concomitant]
     Indication: THYROID DISORDER
     Dosage: UNKNOWN
  7. EVISTA [Concomitant]
     Indication: BREAST CANCER
     Dosage: UNKNOWN
  8. VITAMINS [Concomitant]
     Dosage: UNKNOWN
  9. SPIRIVA [Concomitant]
     Indication: CHRONIC OBSTRUCTIVE PULMONARY DISEASE
     Dosage: UNKNOWN
  10. LASARTAN [Concomitant]
     Dosage: UNKNOWN

REACTIONS (3)
  - Cough [Unknown]
  - Intentional drug misuse [Unknown]
  - Drug dose omission [Unknown]
